FAERS Safety Report 17639592 (Version 1)
Quarter: 2020Q2

REPORT INFORMATION
  Report Type: Spontaneous
  Country: CA (occurrence: CA)
  Receive Date: 20200407
  Receipt Date: 20200407
  Transmission Date: 20200713
  Serious: Yes (Hospitalization, Other)
  Sender: FDA-Public Use
  Company Number: CA-SAMSUNG BIOEPIS-SB-2020-11074

PATIENT
  Age: 40 Year
  Sex: Female

DRUGS (5)
  1. DICLOFENAC [Concomitant]
     Active Substance: DICLOFENAC
     Indication: PRODUCT USED FOR UNKNOWN INDICATION
     Route: 065
  2. METHOTREXATE. [Concomitant]
     Active Substance: METHOTREXATE
     Indication: PRODUCT USED FOR UNKNOWN INDICATION
     Route: 065
  3. OMEPRAZOLE. [Concomitant]
     Active Substance: OMEPRAZOLE
     Indication: PRODUCT USED FOR UNKNOWN INDICATION
     Dosage: UNKNOWN
     Route: 065
  4. IRON [Concomitant]
     Active Substance: IRON
     Indication: PRODUCT USED FOR UNKNOWN INDICATION
     Dosage: UNKNOWN
     Route: 065
  5. INFLIXIMAB [Suspect]
     Active Substance: INFLIXIMAB
     Indication: RHEUMATOID ARTHRITIS
     Route: 042

REACTIONS (14)
  - Oropharyngeal pain [Unknown]
  - Off label use [Unknown]
  - Incorrect route of product administration [Unknown]
  - Blood iron decreased [Unknown]
  - Urticaria [Unknown]
  - Product use issue [Unknown]
  - Pallor [Unknown]
  - Expired product administered [Unknown]
  - Feeling of body temperature change [Unknown]
  - Dysphonia [Unknown]
  - Haemoglobin decreased [Unknown]
  - Product dose omission [Unknown]
  - Hypersensitivity [Unknown]
  - Poor venous access [Unknown]
